FAERS Safety Report 5454014-3 (Version None)
Quarter: 2007Q3

REPORT INFORMATION
  Report Type: 
  Country: None (occurrence: None)
  Receive Date: 20070917
  Receipt Date: 20070709
  Transmission Date: 20080115
  Serious: Yes (Hospitalization)
  Sender: FDA-Public Use
  Company Number: US-ASTRAZENECA-2006UW06560

PATIENT
  Age: 54 Year
  Sex: Female
  Weight: 45.5 kg

DRUGS (5)
  1. SEROQUEL [Suspect]
     Indication: INSOMNIA
     Route: 048
     Dates: start: 20040301
  2. SEROQUEL [Suspect]
     Indication: DEPRESSION
     Route: 048
     Dates: start: 20040301
  3. ZYPREXA [Concomitant]
     Dates: start: 19980101, end: 20020101
  4. METHADONE HCL [Concomitant]
     Dates: start: 20020101
  5. WEIGHT CONTROL [Concomitant]
     Dates: start: 19890101, end: 19900101

REACTIONS (1)
  - PANCREATITIS [None]
